FAERS Safety Report 8773278 (Version 5)
Quarter: 2013Q1

REPORT INFORMATION
  Report Type: Report from Study
  Country: JP (occurrence: JP)
  Receive Date: 20120907
  Receipt Date: 20130214
  Transmission Date: 20140127
  Serious: Yes (Hospitalization)
  Sender: FDA-Public Use
  Company Number: JP-009507513-1208JPN010696

PATIENT
  Age: 41 Year
  Sex: Male
  Weight: 68 kg

DRUGS (14)
  1. PEGINTRON [Suspect]
     Indication: CHRONIC HEPATITIS C
     Dosage: 1.5 MICROGRAM PER KILOGRAM, QW
     Route: 058
     Dates: start: 20120425, end: 20121010
  2. REBETOL [Suspect]
     Indication: CHRONIC HEPATITIS C
     Dosage: 800 MG, QD
     Route: 048
     Dates: start: 20120425, end: 20120606
  3. REBETOL [Suspect]
     Dosage: 600 MG, QD
     Route: 048
     Dates: start: 20120607, end: 20120626
  4. REBETOL [Suspect]
     Dosage: 400 MG, QD
     Route: 048
     Dates: start: 20120627, end: 20120703
  5. REBETOL [Suspect]
     Dosage: 200 MG, QD
     Route: 048
     Dates: start: 20120723, end: 20120730
  6. REBETOL [Suspect]
     Dosage: 400 MG, QD
     Route: 048
     Dates: start: 20120731, end: 20120807
  7. REBETOL [Suspect]
     Dosage: 600 MG, QD
     Route: 048
     Dates: start: 20120808, end: 20121016
  8. REBETOL [Suspect]
     Dosage: UNK
  9. TELAVIC [Suspect]
     Indication: CHRONIC HEPATITIS C
     Dosage: 2250 MG, QD
     Route: 048
     Dates: start: 20120425, end: 20120718
  10. URSO [Concomitant]
     Indication: CHRONIC HEPATITIS C
     Dosage: 300 MG, QD, POR
     Route: 048
  11. FLUTIDE [Concomitant]
     Indication: ASTHMA
     Dosage: INHALATION, PRN, DAILY DOSE UNKNOWN
     Route: 055
  12. FLUTIDE [Concomitant]
     Dosage: INHALATION, PRN
     Route: 055
  13. MEPTIN AIR [Concomitant]
     Indication: ASTHMA
     Dosage: 10 MICROGRAM PER DAY AS NEEDED
     Route: 055
  14. MEPTIN AIR [Concomitant]
     Dosage: 10 MICROGRAM, PER DAY AS NEEDED
     Route: 055

REACTIONS (1)
  - Anaemia [Not Recovered/Not Resolved]
